FAERS Safety Report 11623416 (Version 1)
Quarter: 2015Q4

REPORT INFORMATION
  Report Type: Spontaneous
  Country: US (occurrence: US)
  Receive Date: 20151013
  Receipt Date: 20151013
  Transmission Date: 20160304
  Serious: No
  Sender: FDA-Public Use
  Company Number: US-JNJFOC-20150504415

PATIENT
  Age: 63 Year
  Sex: Female
  Weight: 65.77 kg

DRUGS (3)
  1. TYLENOL [Suspect]
     Active Substance: ACETAMINOPHEN
     Route: 048
  2. METHYLPREDNISOLONE. [Concomitant]
     Active Substance: METHYLPREDNISOLONE
     Indication: MYALGIA
     Dosage: FOR 6 DAYS + 1 REFIL
     Route: 065
     Dates: start: 201412
  3. TYLENOL [Suspect]
     Active Substance: ACETAMINOPHEN
     Indication: POLYMYALGIA RHEUMATICA
     Dosage: ONCE OR TWICE
     Route: 048

REACTIONS (2)
  - Drug ineffective for unapproved indication [Unknown]
  - Off label use [Unknown]
